FAERS Safety Report 6232473-6 (Version None)
Quarter: 2009Q2

REPORT INFORMATION
  Report Type: 
  Country: None (occurrence: None)
  Receive Date: 20090617
  Receipt Date: 20090604
  Transmission Date: 20091009
  Serious: Yes (Death, Congenital Anomaly)
  Sender: FDA-Public Use
  Company Number: NL-ROCHE-636485

PATIENT
  Sex: Female

DRUGS (2)
  1. PEG-INTERFERON ALFA 2A (RO 25-8310) [Suspect]
     Indication: HEPATITIS B
     Route: 065
  2. ADEFOVIR DIPIVOXIL KIT [Suspect]
     Indication: HEPATITIS B
     Route: 065

REACTIONS (1)
  - TRISOMY 13 [None]
